FAERS Safety Report 5533340-3 (Version None)
Quarter: 2007Q4

REPORT INFORMATION
  Report Type: 
  Country: None (occurrence: None)
  Receive Date: 20071204
  Receipt Date: 20071031
  Transmission Date: 20080405
  Serious: Yes (Other)
  Sender: FDA-Public Use
  Company Number: US-JNJFOC-20071101074

PATIENT
  Age: 64 Year
  Sex: Female
  Weight: 61.24 kg

DRUGS (6)
  1. LEVAQUIN [Suspect]
     Route: 048
  2. LEVAQUIN [Suspect]
     Indication: OTITIS MEDIA
     Route: 048
  3. CIPRO [Concomitant]
     Indication: OTITIS MEDIA
     Route: 048
  4. LIPITOR [Concomitant]
     Indication: HYPERLIPIDAEMIA
     Route: 048
  5. HYZAAR [Concomitant]
     Indication: HYPERTENSION
     Route: 048
  6. PROZAC [Concomitant]
     Indication: DEPRESSION
     Route: 048

REACTIONS (5)
  - INSOMNIA [None]
  - NIGHTMARE [None]
  - PAIN IN EXTREMITY [None]
  - PALPITATIONS [None]
  - PHOTOSENSITIVITY REACTION [None]
